FAERS Safety Report 18294010 (Version 1)
Quarter: 2020Q3

REPORT INFORMATION
  Report Type: Spontaneous
  Country: US (occurrence: US)
  Receive Date: 20200922
  Receipt Date: 20200922
  Transmission Date: 20201103
  Serious: Yes (Death, Hospitalization, Other)
  Sender: FDA-Public Use
  Company Number: US-SCIEGEN-2020SCILIT00298

PATIENT

DRUGS (2)
  1. METFORMIN HYDROCHLORIDETABLETS [Suspect]
     Active Substance: METFORMIN HYDROCHLORIDE
     Indication: PRODUCT USED FOR UNKNOWN INDICATION
     Route: 065
  2. VASOPRESSORS [Interacting]
     Active Substance: UNSPECIFIED INGREDIENT
     Indication: SHOCK
     Dosage: UNKNOWN
     Route: 065

REACTIONS (4)
  - Lactic acidosis [Fatal]
  - Respiratory failure [Fatal]
  - Toxicity to various agents [Fatal]
  - Shock [Fatal]
